FAERS Safety Report 5533471-8 (Version None)
Quarter: 2007Q4

REPORT INFORMATION
  Report Type: 
  Country: None (occurrence: None)
  Receive Date: 20071204
  Receipt Date: 20071123
  Transmission Date: 20080405
  Serious: Yes (Life-Threatening, Hospitalization)
  Sender: FDA-Public Use
  Company Number: ES-PFIZER INC-2007099739

PATIENT
  Age: 86 Year
  Sex: Female

DRUGS (6)
  1. AREMIS [Suspect]
     Indication: DEPRESSION
     Route: 048
  2. IBUPROFEN [Interacting]
     Indication: PAIN
     Route: 048
  3. MANIDON - SLOW RELEASE [Concomitant]
     Indication: ANGINA PECTORIS
     Dosage: TEXT:120MG-FREQ:DAILY
     Route: 048
  4. HIDROSALURETIL [Concomitant]
     Indication: HYPERTENSION
     Dosage: TEXT:50MG-FREQ:DAILY
     Route: 048
  5. ORFIDAL [Concomitant]
     Indication: INSOMNIA
     Dosage: TEXT:1MG-FREQ:DAILY
     Route: 048
  6. OMEPRAZOLE [Concomitant]
     Indication: GASTROOESOPHAGEAL REFLUX PROPHYLAXIS
     Dosage: TEXT:20MG-FREQ:DAILY
     Route: 048

REACTIONS (2)
  - DRUG INTERACTION [None]
  - GASTROINTESTINAL HAEMORRHAGE [None]
